FAERS Safety Report 20816149 (Version 2)
Quarter: 2022Q2

REPORT INFORMATION
  Report Type: Report from Study
  Country: CO (occurrence: CO)
  Receive Date: 20220511
  Receipt Date: 20220526
  Transmission Date: 20220721
  Serious: Yes (Hospitalization, Other)
  Sender: FDA-Public Use
  Company Number: CO-BRISTOL-MYERS SQUIBB COMPANY-2022-025974

PATIENT
  Age: 62 Year
  Sex: Female
  Weight: 72 kg

DRUGS (1)
  1. ORENCIA [Suspect]
     Active Substance: ABATACEPT
     Indication: Rheumatoid arthritis
     Dosage: 750 MG/ML
     Route: 042
     Dates: start: 20191223

REACTIONS (2)
  - Arthropathy [Not Recovered/Not Resolved]
  - Sciatic nerve injury [Recovering/Resolving]

NARRATIVE: CASE EVENT DATE: 20220416
